FAERS Safety Report 12282429 (Version 1)
Quarter: 2016Q2

REPORT INFORMATION
  Report Type: Other
  Country: GB (occurrence: GB)
  Receive Date: 20160419
  Receipt Date: 20160419
  Transmission Date: 20160815
  Serious: Yes (Life-Threatening, Hospitalization)
  Sender: FDA-Public Use
  Company Number: GB-MYLANLABS-2016M1014816

PATIENT

DRUGS (12)
  1. PHENERGAN [Suspect]
     Active Substance: PROMETHAZINE HYDROCHLORIDE
     Indication: AGITATION
     Dosage: UNSURE, PERHAPS 25MG DAILY
     Route: 048
     Dates: start: 20160217
  2. FLUCLOXACILLIN [Concomitant]
     Active Substance: FLUCLOXACILLIN
     Dosage: UNK
     Dates: start: 20160401
  3. CLONAZEPAM. [Suspect]
     Active Substance: CLONAZEPAM
     Indication: AGITATION
     Dosage: 4 MG, UNK (IN FOUR DOSES)
     Route: 048
     Dates: start: 20160217
  4. INNOHEP [Concomitant]
     Active Substance: TINZAPARIN SODIUM
     Dosage: UNK
  5. HALOPERIDOL. [Concomitant]
     Active Substance: HALOPERIDOL
     Dosage: UNK
  6. REDOXON MULTIVITAMIN 1 [Concomitant]
     Dosage: UNK
  7. EPILIM [Suspect]
     Active Substance: VALPROATE SODIUM
     Indication: HYPOMANIA
     Dosage: UNSURE BUT MAYBE IN THE RANGE OF 0.5-1G DAILY
     Route: 048
     Dates: start: 20160217
  8. ANTIBIOTICS [Concomitant]
     Active Substance: UNSPECIFIED INGREDIENT
     Dosage: UNK
  9. ASPIRIN                            /00002701/ [Concomitant]
     Active Substance: ASPIRIN
     Dosage: UNK
  10. OMEGA-3                            /01866101/ [Concomitant]
     Active Substance: OMEGA-3 FATTY ACIDS
     Dosage: UNK
  11. OLANZAPINE. [Suspect]
     Active Substance: OLANZAPINE
     Indication: HYPOMANIA
     Dosage: 10 MG, QD (NOCTE)
     Route: 048
     Dates: start: 20160217
  12. ANTIHISTAMINES [Concomitant]
     Active Substance: ANTIHISTAMINES NOS
     Dosage: UNK

REACTIONS (12)
  - Oedema peripheral [Unknown]
  - Liver injury [Not Recovered/Not Resolved]
  - Verbal abuse [Not Recovered/Not Resolved]
  - Cerebrovascular accident [Unknown]
  - Aggression [Not Recovered/Not Resolved]
  - Localised infection [Unknown]
  - Reaction to drug excipients [Unknown]
  - Breathing-related sleep disorder [Unknown]
  - Drug interaction [Unknown]
  - Rash maculo-papular [Unknown]
  - Pruritus [Unknown]
  - Drug hypersensitivity [Not Recovered/Not Resolved]

NARRATIVE: CASE EVENT DATE: 20160217
